FAERS Safety Report 9121883 (Version 2)
Quarter: 2013Q1

REPORT INFORMATION
  Report Type: Spontaneous
  Country: FR (occurrence: FR)
  Receive Date: 20130227
  Receipt Date: 20130304
  Transmission Date: 20140127
  Serious: Yes (Hospitalization)
  Sender: FDA-Public Use
  Company Number: FR-009507513-1302FRA009668

PATIENT
  Age: 28 Year
  Sex: Male

DRUGS (1)
  1. STROMECTOL [Suspect]
     Indication: PROPHYLAXIS
     Dosage: 6 DF, ONCE
     Route: 048
     Dates: start: 20130205, end: 20130205

REACTIONS (4)
  - Malaise [Recovered/Resolved]
  - Confusional state [Recovered/Resolved]
  - Vomiting [Recovered/Resolved]
  - Amnesia [Recovered/Resolved with Sequelae]
